FAERS Safety Report 9216263 (Version 2)
Quarter: 2013Q2

REPORT INFORMATION
  Report Type: Spontaneous
  Country: BG (occurrence: BG)
  Receive Date: 20130408
  Receipt Date: 20130412
  Transmission Date: 20140414
  Serious: Yes (Hospitalization, Other)
  Sender: FDA-Public Use
  Company Number: BG-BAYER-2013-039757

PATIENT
  Age: 33 Year
  Sex: Female

DRUGS (1)
  1. YASMIN [Suspect]
     Indication: CONTRACEPTION
     Dosage: UNK
     Route: 048
     Dates: start: 2004, end: 20130324

REACTIONS (5)
  - Pregnancy on oral contraceptive [Recovering/Resolving]
  - Drug ineffective [None]
  - Amniorrhoea [Recovered/Resolved with Sequelae]
  - Haemorrhage in pregnancy [Recovered/Resolved with Sequelae]
  - Oligohydramnios [None]
